FAERS Safety Report 20958164 (Version 1)
Quarter: 2022Q2

REPORT INFORMATION
  Report Type: Spontaneous
  Country: US (occurrence: US)
  Receive Date: 20220614
  Receipt Date: 20220614
  Transmission Date: 20220721
  Serious: No
  Sender: FDA-Public Use
  Company Number: US-PFIZER INC-202200828177

PATIENT
  Age: 67 Year
  Sex: Female

DRUGS (3)
  1. PAXLOVID [Suspect]
     Active Substance: NIRMATRELVIR\RITONAVIR
     Indication: COVID-19 treatment
     Dosage: UNK
  2. XELODA [Concomitant]
     Active Substance: CAPECITABINE
     Indication: Neoplasm malignant
     Dosage: UNK
  3. CYTARABINE [Concomitant]
     Active Substance: CYTARABINE
     Indication: Neoplasm malignant

REACTIONS (2)
  - Dysgeusia [Unknown]
  - Nausea [Unknown]
